FAERS Safety Report 14928128 (Version 2)
Quarter: 2018Q2

REPORT INFORMATION
  Report Type: Spontaneous
  Country: US (occurrence: US)
  Receive Date: 20180523
  Receipt Date: 20180620
  Transmission Date: 20180711
  Serious: No
  Sender: FDA-Public Use
  Company Number: US-ASTRAZENECA-2018SE43377

PATIENT
  Age: 25575 Day
  Sex: Male
  Weight: 95.3 kg

DRUGS (5)
  1. INSULIN [Concomitant]
     Active Substance: INSULIN NOS
  2. BYDUREON [Suspect]
     Active Substance: EXENATIDE
     Indication: TYPE 2 DIABETES MELLITUS
     Route: 058
  3. METFORMIN [Concomitant]
     Active Substance: METFORMIN HYDROCHLORIDE
  4. NADOLOL. [Concomitant]
     Active Substance: NADOLOL
  5. GLIPIZIDE. [Concomitant]
     Active Substance: GLIPIZIDE

REACTIONS (3)
  - Underdose [Unknown]
  - Device issue [Unknown]
  - Injection site extravasation [Recovered/Resolved]

NARRATIVE: CASE EVENT DATE: 20180430
